FAERS Safety Report 5145143-2 (Version None)
Quarter: 2006Q4

REPORT INFORMATION
  Report Type: 
  Country: None (occurrence: None)
  Receive Date: 20061107
  Receipt Date: 20060302
  Transmission Date: 20070319
  Serious: Yes (Hospitalization, Other)
  Sender: FDA-Public Use
  Company Number: US-ELI_LILLY_AND_COMPANY-US200603002341

PATIENT
  Age: 36 Year
  Sex: Male
  Weight: 89.795 kg

DRUGS (4)
  1. HALOPERIDOL [Concomitant]
     Dates: start: 20000301
  2. FLUOXETINE HYDROCHLORIDE [Concomitant]
     Dates: start: 19930301
  3. ZYPREXA [Suspect]
     Indication: BIPOLAR I DISORDER
     Dosage: 2.5 MG, UNK
     Dates: end: 19991201
  4. ZYPREXA [Suspect]
     Dosage: 5 MG, UNK
     Dates: start: 20000101, end: 20000601

REACTIONS (3)
  - BILIARY TRACT DISORDER [None]
  - HEPATITIS VIRAL [None]
  - PANCREATITIS [None]
